FAERS Safety Report 7363857-0 (Version None)
Quarter: 2011Q1

REPORT INFORMATION
  Report Type: 
  Country: None (occurrence: None)
  Receive Date: 20110321
  Receipt Date: 20110311
  Transmission Date: 20110831
  Serious: Yes (Other)
  Sender: FDA-Public Use
  Company Number: US-PFIZER INC-2006031543

PATIENT
  Sex: Female

DRUGS (4)
  1. NEURONTIN [Suspect]
     Dosage: 400 MG, 4X/DAY
     Dates: start: 20020611
  2. NEURONTIN [Suspect]
     Dosage: UNK
     Dates: start: 20000909
  3. NEURONTIN [Suspect]
     Dosage: 100 MG, 4X/DAY
  4. NEURONTIN [Suspect]
     Dosage: 800 MG, 4X/DAY
     Dates: start: 20020328

REACTIONS (4)
  - DEPRESSION [None]
  - SUICIDAL IDEATION [None]
  - SUICIDE ATTEMPT [None]
  - INTENTIONAL OVERDOSE [None]
